FAERS Safety Report 19739581 (Version 1)
Quarter: 2021Q3

REPORT INFORMATION
  Report Type: Spontaneous
  Country: US (occurrence: US)
  Receive Date: 20210823
  Receipt Date: 20210823
  Transmission Date: 20211014
  Serious: No
  Sender: FDA-Public Use
  Company Number: US-US-PROVELL PHARMACEUTICALS LLC-9257242

PATIENT
  Age: 88 Year
  Sex: Female
  Weight: 52 kg

DRUGS (3)
  1. EUTHYROX [Suspect]
     Active Substance: LEVOTHYROXINE SODIUM
     Indication: THYROID DISORDER
     Dosage: SERIAL NUMBER? 1184500216
     Route: 048
     Dates: start: 20210605, end: 20210728
  2. BACLOFEN. [Concomitant]
     Active Substance: BACLOFEN
     Indication: PRODUCT USED FOR UNKNOWN INDICATION
     Route: 048
  3. LISINOPRIL. [Concomitant]
     Active Substance: LISINOPRIL
     Indication: PRODUCT USED FOR UNKNOWN INDICATION
     Route: 048

REACTIONS (6)
  - Hypersomnia [Unknown]
  - Treatment noncompliance [Unknown]
  - Feeling abnormal [Unknown]
  - Abdominal pain upper [Recovering/Resolving]
  - Adverse reaction [Unknown]
  - Nausea [Unknown]

NARRATIVE: CASE EVENT DATE: 2021
